FAERS Safety Report 6882736-6 (Version None)
Quarter: 2010Q3

REPORT INFORMATION
  Report Type: 
  Country: None (occurrence: None)
  Receive Date: 20100729
  Receipt Date: 20100719
  Transmission Date: 20110219
  Serious: Yes (Other)
  Sender: FDA-Public Use
  Company Number: GR-ROCHE-716242

PATIENT
  Age: 57 Year
  Sex: Female

DRUGS (4)
  1. BONIVA [Suspect]
     Indication: OSTEOPOROSIS
     Route: 048
     Dates: start: 20100601
  2. CALCIUM SUPPLEMENTS [Concomitant]
     Indication: OSTEOPOROSIS
  3. VITAMINE D [Concomitant]
     Indication: OSTEOPOROSIS
     Dosage: DRUG REPORTED: VITAMIN D SUPPLEMENT
  4. VITAMIN B-12 [Concomitant]
     Dosage: DRUG REPORTED: VITAMIN B12 SUPPLEMENTS

REACTIONS (2)
  - ARTHRALGIA [None]
  - PERIODONTITIS [None]
